FAERS Safety Report 9124633 (Version 1)
Quarter: 2013Q1

REPORT INFORMATION
  Report Type: Spontaneous
  Country: FR (occurrence: FR)
  Receive Date: 20130116
  Receipt Date: 20130116
  Transmission Date: 20140127
  Serious: Yes (Other)
  Sender: FDA-Public Use
  Company Number: PHHY2013FR002982

PATIENT
  Age: 39 Year
  Sex: Male

DRUGS (4)
  1. TEGRETOL [Suspect]
     Indication: EPILEPSY
     Dosage: 1200 MG, DAILY
     Route: 048
     Dates: end: 2012
  2. TEGRETOL [Suspect]
     Dosage: 600 MG, DAILY
     Route: 048
     Dates: start: 20120618, end: 20121008
  3. TEGRETOL [Suspect]
     Dosage: 1200 MG, DAILY
     Route: 048
     Dates: start: 20121008
  4. RETIGABINE [Concomitant]
     Dosage: 1 G, QD

REACTIONS (2)
  - Drug prescribing error [Recovered/Resolved]
  - Grand mal convulsion [Recovered/Resolved]
